FAERS Safety Report 6559320-7 (Version None)
Quarter: 2010Q1

REPORT INFORMATION
  Report Type: 
  Country: None (occurrence: None)
  Receive Date: 20100129
  Receipt Date: 20090908
  Transmission Date: 20100710
  Serious: No
  Sender: FDA-Public Use
  Company Number: US-ABBOTT-09P-163-0593383-00

PATIENT
  Sex: Female
  Weight: 113.5 kg

DRUGS (14)
  1. HUMIRA [Suspect]
     Indication: PSORIATIC ARTHROPATHY
     Dates: start: 20081101, end: 20090201
  2. HUMIRA [Suspect]
     Dates: start: 20090201
  3. METHOTREXATE [Concomitant]
     Indication: PSORIATIC ARTHROPATHY
     Dates: start: 20070101
  4. LISINOPRIL AND HYDROCHLOROTHIAZIDE [Concomitant]
     Indication: HYPERTENSION
  5. AMLODIPINE [Concomitant]
     Indication: HYPERTENSION
  6. METOPROLOL [Concomitant]
     Indication: HYPERTENSION
  7. LISINOPRIL [Concomitant]
     Indication: HYPERTENSION
  8. FOLIC ACID [Concomitant]
     Indication: DRUG USE FOR UNKNOWN INDICATION
  9. ESTROPIPATE [Concomitant]
     Indication: HORMONE REPLACEMENT THERAPY
  10. ESTROPIPATE [Concomitant]
     Indication: HYSTERECTOMY
  11. LEVOTHYROXINE SODIUM [Concomitant]
     Indication: HYPOTHYROIDISM
  12. SERTRALINE HCL [Concomitant]
     Indication: DEPRESSION
  13. TYLENOL W/ CODEINE NO. 3 [Concomitant]
     Indication: PAIN
     Dosage: 300/30 MG PER TAB
     Dates: start: 20070101
  14. MOTRIN [Concomitant]
     Indication: PAIN

REACTIONS (2)
  - DRUG EFFECT DECREASED [None]
  - DRUG INEFFECTIVE [None]
